FAERS Safety Report 15356747 (Version 1)
Quarter: 2018Q3

REPORT INFORMATION
  Report Type: Report from Study
  Country: US (occurrence: US)
  Receive Date: 20180906
  Receipt Date: 20180906
  Transmission Date: 20181010
  Serious: No
  Sender: FDA-Public Use
  Company Number: US-SA-2018SA161210

PATIENT
  Age: 33 Year
  Sex: Female
  Weight: 73 kg

DRUGS (9)
  1. FERROUS FUMARATE [Concomitant]
     Active Substance: FERROUS FUMARATE
     Indication: SUPPLEMENTATION THERAPY
     Dosage: 1 DF
     Route: 048
     Dates: start: 20150427
  2. IRON [Concomitant]
     Active Substance: IRON
     Indication: DRUG THERAPY
     Dosage: 1 DF, QD
     Route: 048
     Dates: start: 20150427
  3. FOLATE [Concomitant]
     Active Substance: FOLATE SODIUM
     Indication: SUPPLEMENTATION THERAPY
     Dosage: 800 MG
     Route: 048
     Dates: start: 201802
  4. VITAMIN D3 [Concomitant]
     Active Substance: CHOLECALCIFEROL
     Indication: ADJUVANT THERAPY
     Dosage: 5000 IU, QD
     Route: 048
     Dates: start: 201601
  5. LEVOTHYROXINE. [Concomitant]
     Active Substance: LEVOTHYROXINE
     Indication: HYPOTHYROIDISM
     Dosage: 100 UG, QD
     Route: 048
     Dates: start: 20170103
  6. CALCIUM [Concomitant]
     Active Substance: CALCIUM
     Indication: SUPPLEMENTATION THERAPY
     Dosage: 1000 MG
     Route: 048
     Dates: start: 201802
  7. ALEMTUZUMAB [Suspect]
     Active Substance: ALEMTUZUMAB
     Dosage: 60 MG
     Route: 041
     Dates: start: 20080114, end: 20080118
  8. ALEMTUZUMAB [Suspect]
     Active Substance: ALEMTUZUMAB
     Dosage: 36 MG
     Route: 041
     Dates: start: 20090113, end: 20090115
  9. THYROID [Concomitant]
     Active Substance: LEVOTHYROXINE\LIOTHYRONINE
     Indication: HYPOTHYROIDISM
     Dosage: 1 DF
     Route: 048
     Dates: start: 201601

REACTIONS (1)
  - Pregnancy [Unknown]

NARRATIVE: CASE EVENT DATE: 20180220
